FAERS Safety Report 13196502 (Version 9)
Quarter: 2017Q2

REPORT INFORMATION
  Report Type: Report from Study
  Country: BR (occurrence: BR)
  Receive Date: 20170208
  Receipt Date: 20170602
  Transmission Date: 20170830
  Serious: Yes (Life-Threatening, Hospitalization, Congenital Anomaly, Other)
  Sender: FDA-Public Use
  Company Number: BR-VIIV HEALTHCARE LIMITED-BR2017GSK015761

PATIENT
  Age: 0 Day
  Sex: Female
  Weight: 1.89 kg

DRUGS (10)
  1. GANCICLOVIR. [Concomitant]
     Active Substance: GANCICLOVIR
     Dosage: UNK
     Dates: end: 20170331
  2. EFAVIRENZ [Suspect]
     Active Substance: EFAVIRENZ
     Indication: HIV INFECTION
     Dosage: 600 MG, QD
     Route: 064
     Dates: start: 20161223, end: 20170201
  3. LAMIVUDINE. [Concomitant]
     Active Substance: LAMIVUDINE
     Dosage: UNK
     Dates: start: 20170313, end: 20170419
  4. LAMIVUDINE. [Concomitant]
     Active Substance: LAMIVUDINE
     Dosage: UNK
     Dates: start: 20170525
  5. ZIDOVUDINE. [Concomitant]
     Active Substance: ZIDOVUDINE
     Dosage: UNK
     Dates: start: 20170525
  6. NEVIRAPINE. [Concomitant]
     Active Substance: NEVIRAPINE
     Dosage: UNK
     Dates: start: 20170525
  7. LAMIVUDINE AND ZIDOVUDINE [Suspect]
     Active Substance: LAMIVUDINE\ZIDOVUDINE
     Indication: HIV INFECTION
     Dosage: 450 MG, BID
     Route: 064
     Dates: start: 20161223, end: 20170201
  8. CEPHALEXIN. [Concomitant]
     Active Substance: CEPHALEXIN
     Dosage: UNK
     Dates: start: 20161223, end: 20161230
  9. NEVIRAPINE. [Concomitant]
     Active Substance: NEVIRAPINE
     Dosage: UNK
     Dates: start: 20170313, end: 20170419
  10. ZIDOVUDINE. [Concomitant]
     Active Substance: ZIDOVUDINE
     Dosage: UNK
     Dates: start: 20170313, end: 20170419

REACTIONS (2)
  - Congenital cytomegalovirus infection [Not Recovered/Not Resolved]
  - Atrial septal defect [Not Recovered/Not Resolved]

NARRATIVE: CASE EVENT DATE: 20170201
